FAERS Safety Report 8781466 (Version 1)
Quarter: 2012Q4

REPORT INFORMATION
  Report Type: 
  Country: BR (occurrence: BR)
  Receive Date: 20120913
  Receipt Date: 20120913
  Transmission Date: 20130627
  Serious: Yes (Other)
  Sender: FDA-Public Use
  Company Number: BR-PFIZER INC-2012222847

PATIENT
  Age: 76 Year
  Sex: Male

DRUGS (4)
  1. LYRICA [Suspect]
     Indication: HERPES ZOSTER
     Dosage: 300mg, daily (2 tablets daily)
     Route: 048
  2. LYRICA [Suspect]
     Dosage: 600mg, daily (4 tablets daily)
  3. TYLEX [Suspect]
     Dosage: UNK
  4. LOSARTAN [Concomitant]
     Indication: HYPERTENSION
     Dosage: 50 mg, 1x/day

REACTIONS (7)
  - Dyspepsia [Unknown]
  - Abdominal pain upper [Unknown]
  - Parkinson^s disease [Unknown]
  - Drug ineffective for unapproved indication [Unknown]
  - Pain [Unknown]
  - Off label use [Unknown]
  - Weight increased [Unknown]
